FAERS Safety Report 11317980 (Version 1)
Quarter: 2015Q3

REPORT INFORMATION
  Report Type: Spontaneous
  Country: BR (occurrence: BR)
  Receive Date: 20150728
  Receipt Date: 20150728
  Transmission Date: 20151125
  Serious: Yes (Hospitalization, Other)
  Sender: FDA-Public Use
  Company Number: BR-BAUSCH-BL-2015-018055

PATIENT
  Sex: Female

DRUGS (2)
  1. ZINNAT [Suspect]
     Active Substance: CEFUROXIME AXETIL
     Indication: PRODUCT USED FOR UNKNOWN INDICATION
     Route: 065
  2. ELIDEL [Suspect]
     Active Substance: PIMECROLIMUS
     Indication: ECZEMA

REACTIONS (11)
  - Memory impairment [Unknown]
  - Hormone level abnormal [Unknown]
  - Arrhythmia [Recovering/Resolving]
  - Haematuria [Unknown]
  - Stress [Unknown]
  - Drug hypersensitivity [Unknown]
  - Adrenal mass [Unknown]
  - Eczema [Recovering/Resolving]
  - Hepatic neoplasm [Unknown]
  - Spleen disorder [Unknown]
  - Urinary tract infection [Recovered/Resolved]

NARRATIVE: CASE EVENT DATE: 2015
